FAERS Safety Report 19163034 (Version 1)
Quarter: 2021Q2

REPORT INFORMATION
  Report Type: Spontaneous
  Country: CH (occurrence: CH)
  Receive Date: 20210421
  Receipt Date: 20210421
  Transmission Date: 20210717
  Serious: Yes (Death)
  Sender: FDA-Public Use
  Company Number: CH-NOVOPROD-804237

PATIENT
  Age: 65 Year
  Sex: Male

DRUGS (15)
  1. NOVOSEVEN [Suspect]
     Active Substance: COAGULATION FACTOR VIIA RECOMBINANT HUMAN
     Indication: IMMUNE THROMBOCYTOPENIA
     Dosage: 50MICROG/KGBW, REPEATED ACCORDING TO THE CLINIC
     Route: 065
  2. TRANEXAMIC ACID. [Concomitant]
     Active Substance: TRANEXAMIC ACID
     Indication: GASTROINTESTINAL HAEMORRHAGE
     Dosage: 2G
  3. NOVOSEVEN [Suspect]
     Active Substance: COAGULATION FACTOR VIIA RECOMBINANT HUMAN
     Indication: GASTROINTESTINAL HAEMORRHAGE
  4. METHYLPREDNISOLONE. [Concomitant]
     Active Substance: METHYLPREDNISOLONE
     Indication: IMMUNE THROMBOCYTOPENIA
     Dosage: 1MG/KG BW FOR ONE WEEK GRADUAL DOSAGE OVER ONE WEEK
  5. ROMIPLOSTIM [Concomitant]
     Active Substance: ROMIPLOSTIM
     Indication: GASTROINTESTINAL HAEMORRHAGE
  6. ROMIPLOSTIM [Concomitant]
     Active Substance: ROMIPLOSTIM
     Indication: IMMUNE THROMBOCYTOPENIA
     Dosage: WEEKLY ADMINISTRATION, INITIALLY 1MICROG/KGBW, FINALLY 10MICROG/KGBW
  7. TRANEXAMIC ACID. [Concomitant]
     Active Substance: TRANEXAMIC ACID
     Indication: IMMUNE THROMBOCYTOPENIA
     Dosage: 1G BEFORE SURGERY
  8. RITUXIMAB. [Concomitant]
     Active Substance: RITUXIMAB
     Indication: IMMUNE THROMBOCYTOPENIA
     Dosage: 375MG/M2BSA AND WEEK STARTED ON DAY?20, RE?ADMINISTERED ON DAYS 27 AND 34
  9. METHYLPREDNISOLONE. [Concomitant]
     Active Substance: METHYLPREDNISOLONE
     Dosage: HIGH DOSE THERAPY
  10. RITUXIMAB. [Concomitant]
     Active Substance: RITUXIMAB
     Indication: GASTROINTESTINAL HAEMORRHAGE
  11. FACTOR XIII [Concomitant]
     Active Substance: FACTOR XIII CONCENTRATE (HUMAN)
     Indication: GASTROINTESTINAL HAEMORRHAGE
  12. FACTOR XIII [Concomitant]
     Active Substance: FACTOR XIII CONCENTRATE (HUMAN)
     Indication: IMMUNE THROMBOCYTOPENIA
     Dosage: 1500E INTRAOPERATIVE  ( TOTAL 12500 IU DURING HOSPITALISATION)
  13. FIBRINOGEN [Concomitant]
     Active Substance: FIBRINOGEN HUMAN
     Indication: IMMUNE THROMBOCYTOPENIA
     Dosage: 8G
  14. METHYLPREDNISOLONE. [Concomitant]
     Active Substance: METHYLPREDNISOLONE
     Indication: GASTROINTESTINAL HAEMORRHAGE
     Dosage: 125MG
  15. FIBRINOGEN [Concomitant]
     Active Substance: FIBRINOGEN HUMAN
     Indication: GASTROINTESTINAL HAEMORRHAGE

REACTIONS (3)
  - Gastrointestinal haemorrhage [Fatal]
  - Off label use [Unknown]
  - Therapy non-responder [Fatal]
